FAERS Safety Report 20751108 (Version 2)
Quarter: 2022Q2

REPORT INFORMATION
  Report Type: Report from Study
  Country: US (occurrence: None)
  Receive Date: 20220426
  Receipt Date: 20220526
  Transmission Date: 20220721
  Serious: Yes (Hospitalization, Congenital Anomaly)
  Sender: FDA-Public Use
  Company Number: US-ROCHE-3078428

PATIENT
  Age: 37 Year
  Sex: Female
  Weight: 56.3 kg

DRUGS (5)
  1. PACLITAXEL [Suspect]
     Active Substance: PACLITAXEL
     Indication: HER2 negative breast cancer
     Route: 042
     Dates: start: 20210920, end: 20211206
  2. CYCLOPHOSPHAMIDE [Suspect]
     Active Substance: CYCLOPHOSPHAMIDE
     Indication: HER2 negative breast cancer
     Dosage: DAY 1, Q2WEEKS, C1-4,
     Route: 042
     Dates: start: 20210719, end: 20210830
  3. DOXORUBICIN [Suspect]
     Active Substance: DOXORUBICIN
     Indication: HER2 negative breast cancer
     Dosage: DAY 1, Q2WEEKS, C1-4
     Route: 042
     Dates: start: 20210719, end: 20210830
  4. PERTUZUMAB [Suspect]
     Active Substance: PERTUZUMAB
     Indication: HER2 negative breast cancer
     Route: 042
     Dates: start: 20210920
  5. TRASTUZUMAB [Suspect]
     Active Substance: TRASTUZUMAB
     Indication: HER2 negative breast cancer
     Route: 042
     Dates: start: 20210920

REACTIONS (2)
  - Ectopic pregnancy [Recovering/Resolving]
  - Maternal exposure before pregnancy [Unknown]

NARRATIVE: CASE EVENT DATE: 20220319
